FAERS Safety Report 8186536-9 (Version None)
Quarter: 2012Q1

REPORT INFORMATION
  Report Type: 
  Country: None (occurrence: None)
  Receive Date: 20120302
  Receipt Date: 20120302
  Transmission Date: 20120608
  Serious: No
  Sender: FDA-Public Use
  Company Number: None

PATIENT
  Sex: Male
  Weight: 45.8133 kg

DRUGS (1)
  1. AZITHROMYCIN [Suspect]
     Indication: PNEUMONIA
     Dosage: 2 + THEN 1 TSP 1X/DAY, 4 DAYS ORAL
     Route: 048
     Dates: start: 20120216, end: 20120220

REACTIONS (1)
  - DIARRHOEA [None]
